FAERS Safety Report 10585829 (Version 1)
Quarter: 2014Q4

REPORT INFORMATION
  Report Type: Spontaneous
  Country: DK (occurrence: None)
  Receive Date: 20141113
  Receipt Date: 20141113
  Transmission Date: 20150529
  Serious: Yes (Hospitalization, Disabling, Other)
  Sender: FDA-Public Use
  Company Number: DK-AIKEM-000755

PATIENT
  Age: 71 Year
  Sex: Male

DRUGS (3)
  1. ROXITHROMYCIN (ROXITHROMYCIN) [Suspect]
     Active Substance: ROXITHROMYCIN
  2. AMLODIPINE [Suspect]
     Active Substance: AMLODIPINE BESYLATE
  3. SIMVASTATIN(SIMVASTATIN) [Suspect]
     Active Substance: SIMVASTATIN

REACTIONS (2)
  - Myopathy [None]
  - Rhabdomyolysis [None]
